FAERS Safety Report 7860404-1 (Version None)
Quarter: 2011Q4

REPORT INFORMATION
  Report Type: 
  Country: None (occurrence: None)
  Receive Date: 20111027
  Receipt Date: 20111019
  Transmission Date: 20120403
  Serious: Yes (Other)
  Sender: FDA-Public Use
  Company Number: PHHY2011US64308

PATIENT
  Sex: Male
  Weight: 81 kg

DRUGS (2)
  1. EXJADE [Suspect]
     Indication: IRON METABOLISM DISORDER
     Dosage: 1500 MG, DAILY
     Route: 048
     Dates: start: 20090816
  2. EXJADE [Suspect]
     Dosage: 2500 MG, DAILY
     Route: 048
     Dates: start: 20090817, end: 20110801

REACTIONS (5)
  - METASTATIC PAIN [None]
  - BLOOD CREATININE INCREASED [None]
  - GENERAL PHYSICAL HEALTH DETERIORATION [None]
  - METASTASES TO BONE [None]
  - RENAL IMPAIRMENT [None]
